FAERS Safety Report 16810402 (Version 1)
Quarter: 2019Q3

REPORT INFORMATION
  Report Type: Spontaneous
  Country: US (occurrence: US)
  Receive Date: 20190916
  Receipt Date: 20190916
  Transmission Date: 20191005
  Serious: No
  Sender: FDA-Public Use
  Company Number: US-PFIZER INC-2019398074

PATIENT
  Age: 70 Year
  Sex: Female
  Weight: 81.63 kg

DRUGS (1)
  1. ADVIL [Suspect]
     Active Substance: IBUPROFEN
     Dosage: 400 MG, AS NEEDED( 2 200MG AS NEEDED)
     Route: 048
     Dates: start: 201909

REACTIONS (6)
  - Feeling hot [Unknown]
  - Dyspepsia [Recovered/Resolved]
  - Product taste abnormal [Recovered/Resolved]
  - Abdominal pain upper [Recovered/Resolved]
  - Product coating issue [Recovered/Resolved]
  - Poor quality product administered [Unknown]

NARRATIVE: CASE EVENT DATE: 201909
